FAERS Safety Report 7890686-1 (Version None)
Quarter: 2011Q4

REPORT INFORMATION
  Report Type: 
  Country: None (occurrence: None)
  Receive Date: 20111103
  Receipt Date: 20110722
  Transmission Date: 20120403
  Serious: No
  Sender: FDA-Public Use
  Company Number: US-AMGEN-USASP2011037413

PATIENT
  Age: 27 Year
  Sex: Female
  Weight: 101 kg

DRUGS (3)
  1. METHOTREXATE [Concomitant]
     Dosage: 2.5 MG, UNK
  2. PREDNISONE [Concomitant]
     Dosage: 1 MG, UNK
  3. ENBREL [Suspect]
     Indication: PRODUCT USED FOR UNKNOWN INDICATION
     Dosage: 50 MG, QWK
     Route: 058

REACTIONS (2)
  - INJECTION SITE ERYTHEMA [None]
  - INJECTION SITE URTICARIA [None]
